FAERS Safety Report 18186269 (Version 1)
Quarter: 2020Q3

REPORT INFORMATION
  Report Type: Spontaneous
  Country: US (occurrence: US)
  Receive Date: 20200822
  Receipt Date: 20200822
  Transmission Date: 20201103
  Serious: Yes (Disabling, Other)
  Sender: FDA-Public Use
  Company Number: None

PATIENT
  Age: 33 Year
  Sex: Female
  Weight: 49.95 kg

DRUGS (1)
  1. METHADONE HCL [Suspect]
     Active Substance: METHADONE HYDROCHLORIDE
     Indication: DRUG DEPENDENCE
     Route: 048

REACTIONS (10)
  - Seizure [None]
  - Product preparation issue [None]
  - Drug dependence [None]
  - Hyperhidrosis [None]
  - Withdrawal syndrome [None]
  - Abdominal pain upper [None]
  - Adverse drug reaction [None]
  - Syncope [None]
  - Product contamination microbial [None]
  - Poor quality product administered [None]

NARRATIVE: CASE EVENT DATE: 20190927
